FAERS Safety Report 4327990-X (Version None)
Quarter: 2004Q1

REPORT INFORMATION
  Report Type: 
  Country: None (occurrence: None)
  Receive Date: 20040325
  Receipt Date: 20040309
  Transmission Date: 20041129
  Serious: Yes (Hospitalization)
  Sender: FDA-Public Use
  Company Number: DSA_80430_2003

PATIENT
  Age: 44 Year
  Sex: Female
  Weight: 68.0396 kg

DRUGS (5)
  1. XYREM [Suspect]
     Indication: NARCOLEPSY
     Dosage: 9  G NIGHTLY PO
     Route: 048
     Dates: start: 20030401, end: 20031008
  2. VICOPROFEN [Concomitant]
  3. DEXEDRINE [Concomitant]
  4. PROVIGIL [Concomitant]
  5. RITALIN [Concomitant]

REACTIONS (7)
  - ANKLE FRACTURE [None]
  - BIPOLAR DISORDER [None]
  - FACIAL BONES FRACTURE [None]
  - FALL [None]
  - INJURY [None]
  - LOSS OF CONSCIOUSNESS [None]
  - SUDDEN ONSET OF SLEEP [None]
